FAERS Safety Report 6608732-1 (Version None)
Quarter: 2010Q1

REPORT INFORMATION
  Report Type: 
  Country: None (occurrence: None)
  Receive Date: 20100301
  Receipt Date: 20100224
  Transmission Date: 20100710
  Serious: Yes (Death, Hospitalization, Other)
  Sender: FDA-Public Use
  Company Number: PHHY2010JP10969

PATIENT
  Age: 40 Year
  Sex: Male
  Weight: 63 kg

DRUGS (5)
  1. CYCLOSPORINE [Suspect]
     Indication: INTERSTITIAL LUNG DISEASE
     Dosage: 100 MG/DAY
  2. SULFAMETHOXAZOLE AND TRIMETHOPRIM [Concomitant]
     Indication: PNEUMOCYSTIS JIROVECI PNEUMONIA
  3. PREDNISOLONE [Concomitant]
     Indication: INTERSTITIAL LUNG DISEASE
  4. METHYLPREDNISOLONE [Concomitant]
     Indication: DERMATOMYOSITIS
     Dosage: 1 G, UNK
  5. TACROLIMUS [Concomitant]

REACTIONS (16)
  - AORTIC EMBOLUS [None]
  - CARDIAC VALVE VEGETATION [None]
  - DERMATOMYOSITIS [None]
  - DIFFUSE ALVEOLAR DAMAGE [None]
  - ENDOCARDITIS NONINFECTIVE [None]
  - ENDOTRACHEAL INTUBATION [None]
  - INTERSTITIAL LUNG DISEASE [None]
  - MYOCARDIAL INFARCTION [None]
  - OXYGEN SUPPLEMENTATION [None]
  - PNEUMOTHORAX [None]
  - PULMONARY BULLA [None]
  - RENAL INFARCT [None]
  - RESPIRATORY DISORDER [None]
  - RESPIRATORY FAILURE [None]
  - SPLENIC INFARCTION [None]
  - THORACIC OPERATION [None]
